FAERS Safety Report 25212149 (Version 1)
Quarter: 2025Q2

REPORT INFORMATION
  Report Type: Spontaneous
  Country: US (occurrence: US)
  Receive Date: 20250418
  Receipt Date: 20250418
  Transmission Date: 20250717
  Serious: No
  Sender: BIONPHARMA INC.
  Company Number: US-Bion-014824

PATIENT
  Age: 34 Year
  Sex: Male
  Weight: 91.17 kg

DRUGS (1)
  1. IBUPROFEN [Suspect]
     Active Substance: IBUPROFEN
     Indication: Migraine
     Route: 048
     Dates: start: 20250410

REACTIONS (2)
  - Anxiety [Unknown]
  - Extra dose administered [Unknown]
